FAERS Safety Report 4615772-0 (Version None)
Quarter: 2005Q2

REPORT INFORMATION
  Report Type: 
  Country: None (occurrence: None)
  Receive Date: 20050310
  Receipt Date: 20041220
  Transmission Date: 20051028
  Serious: Yes (Other)
  Sender: FDA-Public Use
  Company Number: A03200404283

PATIENT
  Age: 52 Year
  Sex: Female
  Weight: 51.3472 kg

DRUGS (4)
  1. ELOXATIN [Suspect]
     Indication: COLON CANCER METASTATIC
     Dosage: 110 MG Q2W - INTRAVENOUS NOS
     Route: 042
     Dates: start: 20041207, end: 20041207
  2. LEUCOVORIN [Concomitant]
  3. BEVACIZUMAB [Concomitant]
  4. OCTREOTIDE ACETATE [Concomitant]

REACTIONS (6)
  - ERYTHEMA [None]
  - FLUSHING [None]
  - OEDEMA PERIPHERAL [None]
  - PERIORBITAL OEDEMA [None]
  - RASH [None]
  - THROAT IRRITATION [None]
